FAERS Safety Report 16545112 (Version 1)
Quarter: 2019Q3

REPORT INFORMATION
  Report Type: Spontaneous
  Country: US (occurrence: US)
  Receive Date: 20190708
  Receipt Date: 20190708
  Transmission Date: 20191004
  Serious: Yes (Other)
  Sender: FDA-Public Use
  Company Number: None

PATIENT
  Age: 43 Year
  Sex: Female
  Weight: 56.7 kg

DRUGS (3)
  1. BUPROPRION XL 150 MG [Suspect]
     Active Substance: BUPROPION
     Indication: DEPRESSION
     Dosage: ?          QUANTITY:1 TABLET(S);?
     Route: 048
     Dates: start: 20190608, end: 20190708
  2. BUPROPRION XL 150 MG [Suspect]
     Active Substance: BUPROPION
     Indication: ANXIETY
     Dosage: ?          QUANTITY:1 TABLET(S);?
     Route: 048
     Dates: start: 20190608, end: 20190708
  3. ESCITALOPRAM [Concomitant]
     Active Substance: ESCITALOPRAM OXALATE

REACTIONS (3)
  - Condition aggravated [None]
  - Product substitution issue [None]
  - Therapeutic response changed [None]

NARRATIVE: CASE EVENT DATE: 20190706
